FAERS Safety Report 19124040 (Version 1)
Quarter: 2021Q2

REPORT INFORMATION
  Report Type: Other
  Country: JP (occurrence: JP)
  Receive Date: 20210413
  Receipt Date: 20210413
  Transmission Date: 20210717
  Serious: Yes (Hospitalization)
  Sender: FDA-Public Use
  Company Number: JP-ROCHE-2805536

PATIENT
  Age: 24 Year
  Sex: Female

DRUGS (2)
  1. PREDNISOLONE. [Concomitant]
     Active Substance: PREDNISOLONE
     Indication: TAKAYASU^S ARTERITIS
     Route: 065
  2. TOCILIZUMAB. [Suspect]
     Active Substance: TOCILIZUMAB
     Indication: TAKAYASU^S ARTERITIS
     Dosage: DOSAGE IS UNCERTAIN.
     Route: 041
     Dates: start: 20080602

REACTIONS (2)
  - Anaemia [Recovering/Resolving]
  - Intermenstrual bleeding [Recovering/Resolving]

NARRATIVE: CASE EVENT DATE: 20111112
